FAERS Safety Report 6570017-X (Version None)
Quarter: 2010Q1

REPORT INFORMATION
  Report Type: 
  Country: None (occurrence: None)
  Receive Date: 20100204
  Receipt Date: 20100122
  Transmission Date: 20100710
  Serious: Yes (Life-Threatening, Hospitalization, Other)
  Sender: FDA-Public Use
  Company Number: US-BAYER-200942807NA

PATIENT
  Age: 59 Year
  Sex: Male

DRUGS (9)
  1. ULTRAVIST 300 [Suspect]
     Indication: COMPUTERISED TOMOGRAM ABDOMEN
     Dosage: TOTAL DAILY DOSE: 100 ML  UNIT DOSE: 100 ML
     Route: 042
     Dates: start: 20091203, end: 20091203
  2. READI-CAT [Concomitant]
     Dosage: GIVEN 1 HOUR PRIOR TO ULTRAVIST
     Route: 048
     Dates: start: 20091203, end: 20091203
  3. ENALAPRIL MALEATE [Concomitant]
  4. ANTACID TAB [Concomitant]
  5. MULTI-VITAMIN [Concomitant]
  6. VITAMIN C [Concomitant]
  7. FLAX OIL [Concomitant]
  8. FISH OIL [Concomitant]
  9. VITAMIN B COMPLEX CAP [Concomitant]

REACTIONS (4)
  - BLISTER [None]
  - PLATELET COUNT DECREASED [None]
  - SKIN ULCER [None]
  - STOMATITIS HAEMORRHAGIC [None]
